FAERS Safety Report 23097994 (Version 1)
Quarter: 2023Q4

REPORT INFORMATION
  Report Type: Spontaneous
  Country: US (occurrence: None)
  Receive Date: 20231020
  Receipt Date: 20231020
  Transmission Date: 20240110
  Serious: Yes (Death)
  Sender: FDA-Public Use
  Company Number: None

PATIENT
  Age: 83 Year
  Sex: Female

DRUGS (2)
  1. BOSENTAN [Suspect]
     Active Substance: BOSENTAN
     Indication: Pulmonary hypertension
     Dates: start: 20230306, end: 20230808
  2. SILDENAFIL [Suspect]
     Active Substance: SILDENAFIL
     Indication: Pulmonary hypertension
     Dosage: FREQUENCY : TWICE A DAY;?
     Route: 048
     Dates: start: 20230306, end: 20230808

REACTIONS (7)
  - Haemodialysis [None]
  - Hypotension [None]
  - Bradycardia [None]
  - Acute kidney injury [None]
  - Staphylococcus test positive [None]
  - Quality of life decreased [None]
  - Hypoxia [None]

NARRATIVE: CASE EVENT DATE: 20230808
